FAERS Safety Report 18724885 (Version 7)
Quarter: 2021Q1

REPORT INFORMATION
  Report Type: Spontaneous
  Country: US (occurrence: US)
  Receive Date: 20210111
  Receipt Date: 20210203
  Transmission Date: 20210419
  Serious: No
  Sender: FDA-Public Use
  Company Number: US-SA-2021SA005888

PATIENT
  Age: 68 Year
  Sex: Female

DRUGS (2)
  1. LANTUS [Suspect]
     Active Substance: INSULIN GLARGINE
     Dosage: 20 IU, Q12H
     Route: 065
  2. LANTUS [Suspect]
     Active Substance: INSULIN GLARGINE
     Indication: TYPE 2 DIABETES MELLITUS
     Dosage: UNK
     Route: 065

REACTIONS (9)
  - Inappropriate schedule of product administration [Unknown]
  - Overdose [Unknown]
  - Visual impairment [Unknown]
  - Blood glucose decreased [Unknown]
  - Device issue [Unknown]
  - Pollakiuria [Unknown]
  - Tremor [Unknown]
  - Hyperhidrosis [Unknown]
  - Vision blurred [Unknown]
